FAERS Safety Report 5782965-9 (Version None)
Quarter: 2008Q2

REPORT INFORMATION
  Report Type: 
  Country: None (occurrence: None)
  Receive Date: 20080619
  Receipt Date: 20080619
  Transmission Date: 20081010
  Serious: Yes (Hospitalization)
  Sender: FDA-Public Use
  Company Number: None

PATIENT
  Sex: Male
  Weight: 77.1 kg

DRUGS (3)
  1. BORTEZOMIB [Suspect]
     Indication: NON-HODGKIN'S LYMPHOMA
     Dosage: 1.3 MG/M3 DAY 1, 4, 8, 11 IV
     Route: 042
     Dates: start: 20080430, end: 20080510
  2. BENDAMUSTINE [Concomitant]
  3. RITUXIMAB [Concomitant]

REACTIONS (4)
  - DIARRHOEA [None]
  - ILEUS PARALYTIC [None]
  - PYREXIA [None]
  - VOMITING [None]
